FAERS Safety Report 5017248-8 (Version None)
Quarter: 2006Q2

REPORT INFORMATION
  Report Type: 
  Country: None (occurrence: None)
  Receive Date: 20060414
  Receipt Date: 20060302
  Transmission Date: 20061013
  Serious: No
  Sender: FDA-Public Use
  Company Number: 2006SP001051

PATIENT
  Sex: Female

DRUGS (4)
  1. LUNESTA [Suspect]
     Dosage: 3 MG;HS;ORAL
     Route: 048
     Dates: start: 20060101
  2. SINEMET [Concomitant]
  3. METHADONE HCL [Concomitant]
  4. CELEBREX [Concomitant]

REACTIONS (1)
  - MIDDLE INSOMNIA [None]
